FAERS Safety Report 14869738 (Version 2)
Quarter: 2019Q3

REPORT INFORMATION
  Report Type: Report from Study
  Country: CR (occurrence: CR)
  Receive Date: 20180509
  Receipt Date: 20190704
  Transmission Date: 20191004
  Serious: Yes (Other)
  Sender: FDA-Public Use
  Company Number: PHHY2016CR157209

PATIENT
  Age: 55 Year
  Sex: Female

DRUGS (5)
  1. BROMOCRIPTINE [Concomitant]
     Active Substance: BROMOCRIPTINE
     Indication: PRODUCT USED FOR UNKNOWN INDICATION
     Route: 065
  2. SANDOSTATIN LAR DEPOT [Suspect]
     Active Substance: OCTREOTIDE ACETATE
     Indication: PRODUCT USED FOR UNKNOWN INDICATION
     Dosage: UNK
     Route: 065
     Dates: start: 201509
  3. SANDOSTATIN LAR DEPOT [Suspect]
     Active Substance: OCTREOTIDE ACETATE
     Dosage: UNK
     Route: 065
     Dates: start: 20190621
  4. METFORMIN [Concomitant]
     Active Substance: METFORMIN HYDROCHLORIDE
     Indication: PRODUCT USED FOR UNKNOWN INDICATION
     Dosage: 2 DF, UNK
     Route: 065
  5. METFORMIN [Concomitant]
     Active Substance: METFORMIN HYDROCHLORIDE
     Dosage: 3 DF, UNK (1 IN AM AND 2 PILLS IN PM)
     Route: 065

REACTIONS (20)
  - Limb injury [Unknown]
  - Muscle tightness [Unknown]
  - Gastritis [Unknown]
  - Musculoskeletal chest pain [Recovered/Resolved]
  - Pain in extremity [Unknown]
  - Weight increased [Unknown]
  - Pain [Unknown]
  - Colitis [Unknown]
  - Food allergy [Unknown]
  - Gait disturbance [Unknown]
  - Fall [Unknown]
  - Muscle contractions involuntary [Unknown]
  - Vomiting [Unknown]
  - Blood test abnormal [Unknown]
  - Fracture [Unknown]
  - Varicose vein [Unknown]
  - Joint injury [Unknown]
  - Abdominal discomfort [Unknown]
  - Stress [Unknown]
  - Insomnia [Unknown]
